FAERS Safety Report 14737855 (Version 1)
Quarter: 2018Q2

REPORT INFORMATION
  Report Type: Spontaneous
  Country: JP (occurrence: JP)
  Receive Date: 20180409
  Receipt Date: 20180409
  Transmission Date: 20180711
  Serious: Yes (Other)
  Sender: FDA-Public Use
  Company Number: JP-SA-2015SA079366

PATIENT
  Age: 42 Year
  Sex: Female

DRUGS (6)
  1. BELSOMRA [Concomitant]
     Active Substance: SUVOREXANT
     Route: 065
     Dates: start: 2013
  2. EURODIN [Concomitant]
  3. MYSLEE [Suspect]
     Active Substance: ZOLPIDEM TARTRATE
     Route: 048
     Dates: start: 2013
  4. MYSLEE [Suspect]
     Active Substance: ZOLPIDEM TARTRATE
     Route: 048
  5. DEPAS [Concomitant]
     Active Substance: ETIZOLAM
     Route: 048
  6. LENDORMIN [Concomitant]
     Active Substance: BROTIZOLAM
     Route: 065
     Dates: end: 2013

REACTIONS (11)
  - Chills [Not Recovered/Not Resolved]
  - Vision blurred [Unknown]
  - Malaise [Not Recovered/Not Resolved]
  - Facial spasm [Not Recovered/Not Resolved]
  - Diplopia [Unknown]
  - Delirium [Unknown]
  - Bruxism [Not Recovered/Not Resolved]
  - Judgement impaired [Not Recovered/Not Resolved]
  - Somnolence [Not Recovered/Not Resolved]
  - Mastication disorder [Not Recovered/Not Resolved]
  - Mental impairment [Not Recovered/Not Resolved]

NARRATIVE: CASE EVENT DATE: 2013
